FAERS Safety Report 4643976-X (Version None)
Quarter: 2005Q2

REPORT INFORMATION
  Report Type: 
  Country: None (occurrence: None)
  Receive Date: 20050331
  Receipt Date: 20050214
  Transmission Date: 20051028
  Serious: No
  Sender: FDA-Public Use
  Company Number: 05P-163-0290531-00

PATIENT
  Age: 58 Year
  Sex: Female
  Weight: 53.978 kg

DRUGS (7)
  1. HUMIRA [Suspect]
     Indication: RHEUMATOID ARTHRITIS
     Dosage: SEE IMAGE
     Route: 058
     Dates: start: 20030101, end: 20041201
  2. HUMIRA [Suspect]
     Indication: RHEUMATOID ARTHRITIS
     Dosage: SEE IMAGE
     Route: 058
     Dates: start: 20041201, end: 20050125
  3. HUMIRA [Suspect]
     Indication: RHEUMATOID ARTHRITIS
     Dosage: SEE IMAGE
     Route: 058
     Dates: start: 20050125
  4. GOLD SHOTS (GOLD) [Concomitant]
  5. PREDNISONE [Concomitant]
  6. SULINDAC [Concomitant]
  7. BENICAR [Concomitant]

REACTIONS (1)
  - RHEUMATOID ARTHRITIS [None]
